APPROVED DRUG PRODUCT: VESICARE
Active Ingredient: SOLIFENACIN SUCCINATE
Strength: 5MG
Dosage Form/Route: TABLET;ORAL
Application: N021518 | Product #001
Applicant: ASTELLAS PHARMA US INC
Approved: Nov 19, 2004 | RLD: Yes | RS: No | Type: DISCN